FAERS Safety Report 23649656 (Version 3)
Quarter: 2024Q3

REPORT INFORMATION
  Report Type: Spontaneous
  Country: JP (occurrence: None)
  Receive Date: 20240319
  Receipt Date: 20240729
  Transmission Date: 20241016
  Serious: Yes (Death, Hospitalization, Other)
  Sender: ASTRAZENECA
  Company Number: 2024A064861

PATIENT
  Age: 76 Year
  Sex: Female
  Weight: 49 kg

DRUGS (15)
  1. IMFINZI [Suspect]
     Active Substance: DURVALUMAB
     Indication: Bile duct cancer
     Route: 041
     Dates: start: 20240110, end: 20240110
  2. GEMCITABINE [Concomitant]
     Active Substance: GEMCITABINE
     Indication: Bile duct cancer
     Dosage: DOSE UNKNOWN1100.0MG UNKNOWN
     Route: 065
     Dates: start: 20240110, end: 20240117
  3. CISPLATIN [Concomitant]
     Active Substance: CISPLATIN
     Indication: Bile duct cancer
     Dosage: DOSE UNKNOWN
     Dates: start: 20240110, end: 20240117
  4. AMLODIPINE [Concomitant]
     Active Substance: AMLODIPINE BESYLATE
     Indication: Hypertension
     Route: 048
     Dates: end: 20240225
  5. MAGNESIUM OXIDE [Concomitant]
     Active Substance: MAGNESIUM OXIDE
     Indication: Constipation
     Route: 048
     Dates: start: 20240117, end: 20240220
  6. LOXOPROFEN SODIUM [Concomitant]
     Active Substance: LOXOPROFEN SODIUM
     Route: 048
     Dates: start: 20240131, end: 20240225
  7. REBAMIPIDE [Concomitant]
     Active Substance: REBAMIPIDE
     Route: 048
     Dates: start: 20240131, end: 20240225
  8. TAKECAB OD [Concomitant]
     Indication: Prophylaxis
     Route: 048
     Dates: start: 20240205, end: 20240225
  9. MANAMIN GA [Concomitant]
     Indication: Prophylaxis
     Route: 048
     Dates: start: 20240109, end: 20240112
  10. APREPITANT [Concomitant]
     Active Substance: APREPITANT
     Indication: Prophylaxis
     Route: 048
     Dates: start: 20240110, end: 20240110
  11. APREPITANT [Concomitant]
     Active Substance: APREPITANT
     Indication: Prophylaxis
     Route: 048
     Dates: start: 20240111, end: 20240112
  12. APREPITANT [Concomitant]
     Active Substance: APREPITANT
     Indication: Prophylaxis
     Route: 048
     Dates: start: 20240117, end: 20240117
  13. APREPITANT [Concomitant]
     Active Substance: APREPITANT
     Indication: Prophylaxis
     Route: 048
     Dates: start: 20240118, end: 20240119
  14. PRAVASTATIN SODIUM [Concomitant]
     Active Substance: PRAVASTATIN SODIUM
     Indication: Dyslipidaemia
     Dates: end: 20240204
  15. BISOPROLOL FUMARATE [Concomitant]
     Active Substance: BISOPROLOL FUMARATE

REACTIONS (2)
  - Immune-mediated myasthenia gravis [Fatal]
  - Thyroiditis subacute [Not Recovered/Not Resolved]

NARRATIVE: CASE EVENT DATE: 20240131
